FAERS Safety Report 6252820-9 (Version None)
Quarter: 2009Q2

REPORT INFORMATION
  Report Type: 
  Country: None (occurrence: None)
  Receive Date: 20090629
  Receipt Date: 20090629
  Transmission Date: 20091009
  Serious: Yes (Disabling)
  Sender: FDA-Public Use
  Company Number: None

PATIENT
  Age: 44 Year
  Sex: Female

DRUGS (1)
  1. FERRLICIT 12.5MG/ML [Suspect]
     Indication: ANAEMIA
     Dosage: 125MG ONCE IV
     Route: 042
     Dates: start: 20090622, end: 20090622

REACTIONS (6)
  - BLOOD PRESSURE INCREASED [None]
  - CHEST PAIN [None]
  - FLUSHING [None]
  - HYPERHIDROSIS [None]
  - INFUSION RELATED REACTION [None]
  - RESPIRATORY RATE INCREASED [None]
